FAERS Safety Report 9468319 (Version 1)
Quarter: 2013Q3

REPORT INFORMATION
  Report Type: Report from Study
  Country: US (occurrence: US)
  Receive Date: 20130821
  Receipt Date: 20130821
  Transmission Date: 20140515
  Serious: Yes (Hospitalization, Other)
  Sender: FDA-Public Use
  Company Number: US-JNJFOC-20130806984

PATIENT
  Age: 75 Year
  Sex: Male
  Weight: 81.65 kg

DRUGS (6)
  1. REMICADE [Suspect]
     Indication: RHEUMATOID ARTHRITIS
     Route: 042
     Dates: start: 20130722
  2. REMICADE [Suspect]
     Indication: RHEUMATOID ARTHRITIS
     Route: 042
     Dates: start: 201306
  3. METHOTREXATE [Concomitant]
     Indication: RHEUMATOID ARTHRITIS
     Route: 065
  4. COUMADIN [Concomitant]
     Indication: PULMONARY EMBOLISM
     Dosage: LONG TERM TREATMENT
     Route: 065
  5. PREVACID [Concomitant]
     Indication: GASTROOESOPHAGEAL REFLUX DISEASE
     Route: 065
  6. CELEBREX [Concomitant]
     Indication: ARTHRALGIA
     Route: 065

REACTIONS (2)
  - Aneurysm [Not Recovered/Not Resolved]
  - Hypersensitivity [Unknown]
